FAERS Safety Report 8989512 (Version 1)
Quarter: 2012Q4

REPORT INFORMATION
  Report Type: Report from Study
  Country: AU (occurrence: AU)
  Receive Date: 20121227
  Receipt Date: 20121227
  Transmission Date: 20130627
  Serious: Yes (Disabling)
  Sender: FDA-Public Use
  Company Number: AU-JNJFOC-20121212603

PATIENT
  Age: 80 Year
  Sex: Female
  Weight: 66.95 kg

DRUGS (19)
  1. XARELTO [Suspect]
     Indication: CEREBROVASCULAR ACCIDENT PROPHYLAXIS
     Route: 048
     Dates: start: 20120801, end: 20120813
  2. XARELTO [Suspect]
     Indication: ATRIAL FIBRILLATION
     Route: 048
     Dates: start: 20120801, end: 20120813
  3. AVAPRO [Concomitant]
  4. BETALOC [Concomitant]
  5. BETNOVATE [Concomitant]
  6. CALTRATE WITH VITAMIN D [Concomitant]
  7. COUMADIN [Concomitant]
  8. COUMADIN [Concomitant]
  9. DIGOXIN [Concomitant]
  10. LALAX [Concomitant]
  11. LIPITOR [Concomitant]
  12. OSTELIN [Concomitant]
  13. PANAMAX [Concomitant]
  14. SERC [Concomitant]
  15. THYROXINE [Concomitant]
  16. THYROXINE [Concomitant]
  17. THYROXINE [Concomitant]
  18. ZANIDIP [Concomitant]
  19. ALODORM [Concomitant]

REACTIONS (2)
  - Epistaxis [Recovered/Resolved]
  - Nausea [Recovered/Resolved]
